FAERS Safety Report 13360545 (Version 1)
Quarter: 2017Q1

REPORT INFORMATION
  Report Type: Spontaneous
  Country: US (occurrence: US)
  Receive Date: 20170322
  Receipt Date: 20170322
  Transmission Date: 20170429
  Serious: No
  Sender: FDA-Public Use
  Company Number: US-TAIHO ONCOLOGY INC-EU-2017-00480

PATIENT
  Age: 39 Year
  Sex: Female
  Weight: 93.52 kg

DRUGS (4)
  1. DIOVAN [Concomitant]
     Active Substance: VALSARTAN
  2. AMBIEN [Concomitant]
     Active Substance: ZOLPIDEM TARTRATE
  3. MIRTAZAPINE. [Concomitant]
     Active Substance: MIRTAZAPINE
  4. LONSURF [Suspect]
     Active Substance: TIPIRACIL HYDROCHLORIDE\TRIFLURIDINE
     Indication: COLON CANCER
     Dosage: CYCLE 4
     Route: 048
     Dates: start: 20170207, end: 201702

REACTIONS (5)
  - Nausea [Recovering/Resolving]
  - Fatigue [Recovered/Resolved with Sequelae]
  - Inappropriate schedule of drug administration [Unknown]
  - Asthenia [Recovered/Resolved with Sequelae]
  - Vomiting [Recovering/Resolving]

NARRATIVE: CASE EVENT DATE: 201702
